FAERS Safety Report 9306818 (Version 1)
Quarter: 2013Q2

REPORT INFORMATION
  Report Type: Spontaneous
  Country: US (occurrence: US)
  Receive Date: 20130523
  Receipt Date: 20130523
  Transmission Date: 20140414
  Serious: Yes (Other)
  Sender: FDA-Public Use
  Company Number: US-US-EMD SERONO, INC.-7133486

PATIENT
  Age: 32 Year
  Sex: Female
  Weight: 84 kg

DRUGS (5)
  1. REBIF [Suspect]
     Indication: MULTIPLE SCLEROSIS
     Route: 058
     Dates: start: 20081104
  2. VITAMIN D3 [Concomitant]
     Indication: PRODUCT USED FOR UNKNOWN INDICATION
  3. IBUPROFEN [Concomitant]
     Indication: DYSMENORRHOEA
  4. IBUPROFEN [Concomitant]
     Indication: PREMEDICATION
  5. ACYCLOVIR                          /00587301/ [Concomitant]
     Indication: GENITAL HERPES

REACTIONS (5)
  - Endometriosis [Recovered/Resolved with Sequelae]
  - Uterine leiomyoma [Not Recovered/Not Resolved]
  - Anxiety [Recovered/Resolved]
  - Injection site pain [Not Recovered/Not Resolved]
  - Injection site erythema [Not Recovered/Not Resolved]
